FAERS Safety Report 15822634 (Version 2)
Quarter: 2019Q1

REPORT INFORMATION
  Report Type: Spontaneous
  Country: LB (occurrence: LB)
  Receive Date: 20190114
  Receipt Date: 20190114
  Transmission Date: 20190417
  Serious: Yes (Life-Threatening, Hospitalization)
  Sender: FDA-Public Use
  Company Number: PHHY2019LB004077

PATIENT
  Age: 45 Year
  Sex: Female

DRUGS (3)
  1. CARBAMAZEPINE. [Suspect]
     Active Substance: CARBAMAZEPINE
     Indication: EPILEPSY
     Dosage: 300 MG, BID
     Route: 065
  2. LEVETIRACETAM. [Suspect]
     Active Substance: LEVETIRACETAM
     Indication: GENERALISED TONIC-CLONIC SEIZURE
     Dosage: 1 G, BID
     Route: 065
  3. METFORMIN [Suspect]
     Active Substance: METFORMIN HYDROCHLORIDE
     Indication: GESTATIONAL DIABETES
     Dosage: 500 MG, TID
     Route: 065

REACTIONS (7)
  - Hypoparathyroidism [Recovered/Resolved]
  - Hypocalcaemia [Recovered/Resolved]
  - Hyperphosphataemia [Recovered/Resolved]
  - Maternal exposure during pregnancy [Unknown]
  - Generalised tonic-clonic seizure [Recovered/Resolved]
  - Maternal exposure during breast feeding [Unknown]
  - Vitamin D deficiency [Recovered/Resolved]
